FAERS Safety Report 9978057 (Version 2)
Quarter: 2014Q1

REPORT INFORMATION
  Report Type: Report from Study
  Country: US (occurrence: US)
  Receive Date: 20140306
  Receipt Date: 20140306
  Transmission Date: 20141002
  Serious: No
  Sender: FDA-Public Use
  Company Number: US-ABBVIE-13P-163-1069564-00

PATIENT
  Age: 53 Year
  Sex: Female

DRUGS (6)
  1. HUMIRA [Suspect]
     Indication: CROHN^S DISEASE
     Dates: start: 20120605, end: 20120605
  2. HUMIRA [Suspect]
     Dates: start: 20120619, end: 20120619
  3. HUMIRA [Suspect]
     Dates: start: 20120703
  4. AZATHIOPRINE [Concomitant]
     Indication: CROHN^S DISEASE
  5. MIRALAX [Concomitant]
     Indication: CROHN^S DISEASE
  6. WARFARIN [Concomitant]
     Indication: ANTICOAGULANT THERAPY

REACTIONS (8)
  - Decreased appetite [Recovered/Resolved]
  - Gastrointestinal haemorrhage [Recovered/Resolved]
  - Fatigue [Recovered/Resolved]
  - Fatigue [Recovered/Resolved]
  - Wound [Recovered/Resolved]
  - Crohn^s disease [Recovered/Resolved]
  - Crohn^s disease [Recovered/Resolved]
  - Unevaluable event [Not Recovered/Not Resolved]
